FAERS Safety Report 8908848 (Version 4)
Quarter: 2013Q4

REPORT INFORMATION
  Report Type: Spontaneous
  Country: JP (occurrence: JP)
  Receive Date: 20121114
  Receipt Date: 20131105
  Transmission Date: 20140711
  Serious: Yes (Death)
  Sender: FDA-Public Use
  Company Number: JP-ROCHE-1151052

PATIENT
  Age: 70 Year
  Sex: Male
  Weight: 68 kg

DRUGS (7)
  1. ACTEMRA [Suspect]
     Indication: RHEUMATOID ARTHRITIS
     Dosage: 480-560MG
     Route: 041
     Dates: start: 20080718, end: 20121011
  2. METHOTREXATE [Suspect]
     Indication: RHEUMATOID ARTHRITIS
     Route: 048
     Dates: end: 20110201
  3. PRELONE [Concomitant]
     Indication: RHEUMATOID ARTHRITIS
     Route: 048
     Dates: end: 20081202
  4. PRELONE [Concomitant]
     Indication: RHEUMATOID ARTHRITIS
     Route: 048
     Dates: start: 20081203, end: 20090106
  5. PRELONE [Concomitant]
     Indication: RHEUMATOID ARTHRITIS
     Route: 048
     Dates: start: 20090107
  6. LOXONIN [Concomitant]
     Indication: RHEUMATOID ARTHRITIS
     Route: 048
  7. GASTER D [Concomitant]
     Indication: PROPHYLAXIS
     Route: 048

REACTIONS (7)
  - Epstein-Barr virus infection [Fatal]
  - Histiocytosis haematophagic [Fatal]
  - Shock haemorrhagic [Fatal]
  - Abdominal wall haematoma [Fatal]
  - White blood cell count decreased [Unknown]
  - Disseminated intravascular coagulation [Fatal]
  - Multi-organ failure [Fatal]
